FAERS Safety Report 13593925 (Version 1)
Quarter: 2017Q2

REPORT INFORMATION
  Report Type: Spontaneous
  Country: US (occurrence: US)
  Receive Date: 20170530
  Receipt Date: 20170530
  Transmission Date: 20170830
  Serious: Yes (Hospitalization)
  Sender: FDA-Public Use
  Company Number: PHHY2017US074867

PATIENT
  Age: 56 Year
  Sex: Male

DRUGS (9)
  1. ETOPOSIDE. [Suspect]
     Active Substance: ETOPOSIDE
     Indication: B-CELL LYMPHOMA
     Dosage: 5 CYCLES
     Route: 065
  2. VORICONAZOLE. [Concomitant]
     Active Substance: VORICONAZOLE
     Indication: BRONCHOPULMONARY ASPERGILLOSIS
     Route: 065
  3. MICAFUNGIN [Concomitant]
     Active Substance: MICAFUNGIN
     Indication: BRONCHOPULMONARY ASPERGILLOSIS
     Route: 065
  4. PREDNISONE. [Suspect]
     Active Substance: PREDNISONE
     Indication: RASH
     Dosage: LOW DOSE FOR RASH
     Route: 065
  5. RITUXIMAB [Suspect]
     Active Substance: RITUXIMAB
     Indication: B-CELL LYMPHOMA
     Dosage: 5 CYCLES
     Route: 065
  6. DOXORUBICIN [Suspect]
     Active Substance: DOXORUBICIN
     Indication: B-CELL LYMPHOMA
     Dosage: 5 CYCLES
     Route: 065
  7. VINCRISTINE [Suspect]
     Active Substance: VINCRISTINE
     Indication: B-CELL LYMPHOMA
     Dosage: 5 CYCLES
     Route: 065
  8. CYCLOPHOSPHAMIDE. [Suspect]
     Active Substance: CYCLOPHOSPHAMIDE
     Indication: B-CELL LYMPHOMA
     Dosage: 5 CYCLES
     Route: 065
  9. PREDNISONE. [Suspect]
     Active Substance: PREDNISONE
     Indication: B-CELL LYMPHOMA
     Dosage: 5 CYCLES
     Route: 065

REACTIONS (2)
  - Posterior reversible encephalopathy syndrome [Not Recovered/Not Resolved]
  - Polymerase chain reaction positive [Unknown]
